FAERS Safety Report 6208335-7 (Version None)
Quarter: 2009Q2

REPORT INFORMATION
  Report Type: 
  Country: None (occurrence: None)
  Receive Date: 20090529
  Receipt Date: 20090522
  Transmission Date: 20091009
  Serious: Yes (Hospitalization, Other)
  Sender: FDA-Public Use
  Company Number: ES-ELI_LILLY_AND_COMPANY-ES200905004941

PATIENT
  Age: 81 Year
  Sex: Female

DRUGS (3)
  1. FORTEO [Suspect]
     Indication: OSTEOPOROSIS
     Dosage: 20 UG, UNKNOWN
     Route: 058
     Dates: start: 20080401, end: 20090427
  2. ACETYLCYSTEINE [Concomitant]
     Indication: SINUSITIS
  3. CARDYL [Concomitant]
     Indication: BLOOD CHOLESTEROL

REACTIONS (2)
  - BONE GRAFT [None]
  - FEMUR FRACTURE [None]
